FAERS Safety Report 6222622-8 (Version None)
Quarter: 2009Q2

REPORT INFORMATION
  Report Type: 
  Country: None (occurrence: None)
  Receive Date: 20090611
  Receipt Date: 20090602
  Transmission Date: 20091009
  Serious: Yes (Hospitalization)
  Sender: FDA-Public Use
  Company Number: US-NOVOPROD-285995

PATIENT
  Age: 62 Year
  Sex: Female

DRUGS (21)
  1. HUMULIN 70/30 [Suspect]
     Indication: DIABETES MELLITUS
     Dosage: 115 U IN AM, 60 U AT NOON, 85 U IN EVENING
     Dates: start: 20070101, end: 20090101
  2. NOVOLOG MIX 70/30 [Suspect]
     Indication: DIABETES MELLITUS
     Route: 058
     Dates: start: 20090406
  3. LANTUS [Concomitant]
     Indication: DIABETES MELLITUS
     Dosage: 80 U, QD
  4. LANTUS [Concomitant]
     Dosage: 160 U, QD AT BEDTIME
  5. LISINOPRIL [Concomitant]
     Indication: HYPERTENSION
     Dosage: 20 MG, QD
  6. SIMVASTATIN [Concomitant]
     Indication: BLOOD CHOLESTEROL INCREASED
     Dosage: 40 MG, QD
  7. WARFARIN SODIUM [Concomitant]
     Indication: DRUG USE FOR UNKNOWN INDICATION
     Dosage: 2.5 TO 5.0 MG PRN
  8. OMEPRAZOLE [Concomitant]
     Indication: GASTROOESOPHAGEAL REFLUX DISEASE
     Dosage: 20 MG, QD
  9. CITALOPRAM [Concomitant]
     Indication: DEPRESSION
     Dosage: 20 MG, QD
  10. SINGULAIR [Concomitant]
     Indication: CHRONIC OBSTRUCTIVE PULMONARY DISEASE
     Dosage: 10 MG, QD
  11. CLONAZEPAM [Concomitant]
     Indication: DRUG USE FOR UNKNOWN INDICATION
     Dosage: 1 MG, TID
  12. SEROQUEL [Concomitant]
     Indication: MENTAL DISORDER
     Dosage: 100 MG, QD
  13. ASPIRIN [Concomitant]
     Indication: DRUG USE FOR UNKNOWN INDICATION
     Dosage: 81 MG, QD
  14. TOPROL-XL [Concomitant]
     Indication: HYPERTENSION
     Dosage: 25 MG, QD
  15. FUROSEMIDE [Concomitant]
     Indication: HYPERTENSION
     Dosage: 80 MG, QD
  16. COMBIVENT [Concomitant]
     Indication: CHRONIC OBSTRUCTIVE PULMONARY DISEASE
     Route: 055
  17. PULMICORT-100 [Concomitant]
     Indication: CHRONIC OBSTRUCTIVE PULMONARY DISEASE
     Route: 055
  18. SPIRIVA [Concomitant]
     Indication: CHRONIC OBSTRUCTIVE PULMONARY DISEASE
     Route: 055
  19. VENTOLIN [Concomitant]
     Indication: CHRONIC OBSTRUCTIVE PULMONARY DISEASE
     Route: 055
  20. POTASSIUM CHLORIDE [Concomitant]
     Indication: DRUG USE FOR UNKNOWN INDICATION
     Dosage: 20 MEQ, QD
  21. OXYGEN [Concomitant]
     Indication: CHRONIC OBSTRUCTIVE PULMONARY DISEASE

REACTIONS (3)
  - BLOOD GLUCOSE INCREASED [None]
  - CHRONIC OBSTRUCTIVE PULMONARY DISEASE [None]
  - PNEUMONIA [None]
